FAERS Safety Report 10049431 (Version 1)
Quarter: 2014Q2

REPORT INFORMATION
  Report Type: Spontaneous
  Country: IT (occurrence: IT)
  Receive Date: 20140401
  Receipt Date: 20140401
  Transmission Date: 20141212
  Serious: Yes (Other)
  Sender: FDA-Public Use
  Company Number: IT-JNJFOC-20140316417

PATIENT
  Age: 73 Year
  Sex: Male
  Weight: 97.96 kg

DRUGS (6)
  1. XARELTO [Suspect]
     Indication: DEEP VEIN THROMBOSIS
     Route: 048
     Dates: start: 20131224, end: 20140123
  2. CARVEDILOL [Concomitant]
     Indication: HYPERTENSION
     Route: 065
  3. ENAPREN [Concomitant]
     Indication: HYPERTENSION
     Route: 048
  4. LASIX [Concomitant]
     Indication: CARDIAC FAILURE
     Route: 065
  5. LASITONE [Concomitant]
     Indication: HYPERTENSION
     Route: 065
  6. XARELTO [Suspect]
     Indication: EMBOLISM VENOUS
     Route: 048
     Dates: start: 20131224, end: 20140123

REACTIONS (3)
  - Age-related macular degeneration [Recovering/Resolving]
  - Visual impairment [Recovering/Resolving]
  - Retinal haemorrhage [Recovering/Resolving]
